FAERS Safety Report 21084737 (Version 1)
Quarter: 2022Q3

REPORT INFORMATION
  Report Type: Spontaneous
  Country: US (occurrence: US)
  Receive Date: 20220714
  Receipt Date: 20220714
  Transmission Date: 20221027
  Serious: No
  Sender: FDA-Public Use
  Company Number: US-PFIZER INC-202200950306

PATIENT
  Sex: Male

DRUGS (3)
  1. VIAGRA [Interacting]
     Active Substance: SILDENAFIL CITRATE
     Dosage: UNK
  2. IBUPROFEN [Interacting]
     Active Substance: IBUPROFEN
     Dosage: UNK
  3. TYLENOL [Interacting]
     Active Substance: ACETAMINOPHEN
     Dosage: UNK

REACTIONS (2)
  - Dysuria [Unknown]
  - Drug interaction [Unknown]
